FAERS Safety Report 10594497 (Version 2)
Quarter: 2015Q1

REPORT INFORMATION
  Report Type: Report from Study
  Country: DE (occurrence: DE)
  Receive Date: 20141120
  Receipt Date: 20150309
  Transmission Date: 20150720
  Serious: Yes (Death, Other)
  Sender: FDA-Public Use
  Company Number: DE-ROCHE-1490586

PATIENT
  Age: 75 Year
  Sex: Male

DRUGS (15)
  1. RITUXIMAB [Suspect]
     Active Substance: RITUXIMAB
     Dosage: 1ST CYCLE
     Route: 042
     Dates: start: 20130802
  2. VINCRISTIN [Concomitant]
     Active Substance: VINCRISTINE
     Dosage: 3RD CYCLE
     Route: 042
     Dates: start: 20130918
  3. DOXORUBICIN [Concomitant]
     Active Substance: DOXORUBICIN
     Indication: POST TRANSPLANT LYMPHOPROLIFERATIVE DISORDER
     Dosage: 1ST CYCLE
     Route: 042
     Dates: start: 20130802
  4. ETOPOSIDE. [Concomitant]
     Active Substance: ETOPOSIDE
     Indication: POST TRANSPLANT LYMPHOPROLIFERATIVE DISORDER
     Dosage: 1ST CYCLE
     Route: 042
     Dates: start: 20130802
  5. RITUXIMAB [Suspect]
     Active Substance: RITUXIMAB
     Dosage: 3RD CYCLE
     Route: 042
     Dates: start: 20130918
  6. VINCRISTIN [Concomitant]
     Active Substance: VINCRISTINE
     Indication: POST TRANSPLANT LYMPHOPROLIFERATIVE DISORDER
     Dosage: 1ST CYCLE
     Route: 042
     Dates: start: 20130802
  7. CYCLOPHOSPHAMID [Concomitant]
     Active Substance: CYCLOPHOSPHAMIDE
     Indication: POST TRANSPLANT LYMPHOPROLIFERATIVE DISORDER
     Dosage: 1ST CYCLE
     Route: 042
     Dates: start: 20130802
  8. ETOPOSIDE. [Concomitant]
     Active Substance: ETOPOSIDE
     Dosage: 3RD CYCLE
     Route: 042
     Dates: start: 20130918
  9. RITUXIMAB [Suspect]
     Active Substance: RITUXIMAB
     Indication: POST TRANSPLANT LYMPHOPROLIFERATIVE DISORDER
     Dosage: 1ST CYCLE
     Route: 042
     Dates: start: 20130802
  10. CYCLOPHOSPHAMID [Concomitant]
     Active Substance: CYCLOPHOSPHAMIDE
     Dosage: 3RD CYCLE
     Route: 042
     Dates: start: 20130918
  11. ALEMTUZUMAB [Concomitant]
     Active Substance: ALEMTUZUMAB
     Indication: POST TRANSPLANT LYMPHOPROLIFERATIVE DISORDER
     Route: 058
     Dates: start: 20130918
  12. ALEMTUZUMAB [Concomitant]
     Active Substance: ALEMTUZUMAB
     Route: 058
  13. DEXAMETHASONE. [Concomitant]
     Active Substance: DEXAMETHASONE
     Indication: POST TRANSPLANT LYMPHOPROLIFERATIVE DISORDER
     Dosage: 3RD CYCLE
     Route: 042
     Dates: start: 20130918
  14. ALEMTUZUMAB [Concomitant]
     Active Substance: ALEMTUZUMAB
     Route: 058
  15. DOXORUBICIN [Concomitant]
     Active Substance: DOXORUBICIN
     Dosage: 3RD CYCLE
     Route: 042
     Dates: start: 20130918

REACTIONS (5)
  - Skin ulcer [Recovered/Resolved]
  - Post transplant lymphoproliferative disorder [Fatal]
  - Cellulitis [Recovered/Resolved]
  - White blood cell count decreased [Unknown]
  - Pyrexia [Recovered/Resolved]

NARRATIVE: CASE EVENT DATE: 20130820
